FAERS Safety Report 8341972-2 (Version None)
Quarter: 2012Q2

REPORT INFORMATION
  Report Type: 
  Country: None (occurrence: None)
  Receive Date: 20120507
  Receipt Date: 20120503
  Transmission Date: 20120825
  Serious: No
  Sender: FDA-Public Use
  Company Number: US-TEVA-336682USA

PATIENT
  Sex: Female
  Weight: 62.652 kg

DRUGS (4)
  1. PLAN B ONE-STEP [Suspect]
     Indication: POST COITAL CONTRACEPTION
     Dosage: 1.5 MILLIGRAM;
     Route: 048
     Dates: start: 20120502, end: 20120502
  2. MAXALT [Concomitant]
     Indication: MIGRAINE
     Dosage: 20 MILLIGRAM;
     Route: 048
     Dates: start: 20100101
  3. BACTRIM [Concomitant]
     Indication: URINARY TRACT INFECTION
     Dates: start: 20120419, end: 20120426
  4. NUVARING [Concomitant]
     Indication: CONTRACEPTION
     Route: 015
     Dates: start: 20120430

REACTIONS (2)
  - ABDOMINAL PAIN [None]
  - PARAESTHESIA [None]
